FAERS Safety Report 7095486-0 (Version None)
Quarter: 2010Q4

REPORT INFORMATION
  Report Type: 
  Country: None (occurrence: None)
  Receive Date: 20101102
  Receipt Date: 20101018
  Transmission Date: 20110411
  Serious: Yes (Hospitalization)
  Sender: FDA-Public Use
  Company Number: 020359

PATIENT
  Sex: Male

DRUGS (8)
  1. CIMZIA [Suspect]
     Indication: RHEUMATOID ARTHRITIS
     Dosage: (200 MG 1X/2 WEEKS SUBCUTANEOUS)
     Route: 058
     Dates: start: 20091217, end: 20100924
  2. PREDNISOLONE [Suspect]
     Indication: RHEUMATOID ARTHRITIS
     Dosage: (5 MG ORAL)
     Route: 048
     Dates: start: 20090611
  3. METHOTREXATE [Suspect]
     Indication: RHEUMATOID ARTHRITIS
     Dosage: (8 MG ORAL)
     Route: 048
     Dates: start: 20090808, end: 20100926
  4. REBAMIPIDE [Concomitant]
  5. LOXOPROFEN SODIUM [Concomitant]
  6. TRANEXAMIC ACID [Concomitant]
  7. DIMEMORFAN PHOSPHATE [Concomitant]
  8. ACETAMINOPHEN [Concomitant]

REACTIONS (7)
  - BRONCHIOLITIS [None]
  - CHLAMYDIA TEST POSITIVE [None]
  - IMMUNE SYSTEM DISORDER [None]
  - LUNG CONSOLIDATION [None]
  - NEUTROPHIL PERCENTAGE DECREASED [None]
  - PNEUMONIA PNEUMOCOCCAL [None]
  - PNEUMONIA PRIMARY ATYPICAL [None]
